FAERS Safety Report 15301666 (Version 2)
Quarter: 2019Q2

REPORT INFORMATION
  Report Type: Report from Study
  Country: US (occurrence: US)
  Receive Date: 20180821
  Receipt Date: 20190620
  Transmission Date: 20190711
  Serious: Yes (Hospitalization)
  Sender: FDA-Public Use
  Company Number: US-EISAI MEDICAL RESEARCH-EC-2018-042357

PATIENT
  Age: 60 Year
  Sex: Female
  Weight: 62 kg

DRUGS (15)
  1. LENVIMA [Suspect]
     Active Substance: LENVATINIB
     Indication: RENAL CANCER
     Route: 048
     Dates: start: 20180627, end: 201807
  2. SUCRALFATE. [Concomitant]
     Active Substance: SUCRALFATE
  3. XGEVA [Concomitant]
     Active Substance: DENOSUMAB
  4. AMLODIPINE [Concomitant]
     Active Substance: AMLODIPINE BESYLATE
  5. LEVOTHYROXINE. [Concomitant]
     Active Substance: LEVOTHYROXINE
  6. TYLENOL [Concomitant]
     Active Substance: ACETAMINOPHEN
  7. LENVIMA [Suspect]
     Active Substance: LENVATINIB
     Route: 048
     Dates: start: 201807, end: 201808
  8. LENVIMA [Suspect]
     Active Substance: LENVATINIB
     Route: 048
     Dates: start: 2018, end: 2018
  9. LENVIMA [Suspect]
     Active Substance: LENVATINIB
     Route: 048
     Dates: start: 2018
  10. LOSARTAN. [Concomitant]
     Active Substance: LOSARTAN
  11. RANITIDINE. [Concomitant]
     Active Substance: RANITIDINE
  12. FENTANYL. [Concomitant]
     Active Substance: FENTANYL
  13. AFINITOR [Concomitant]
     Active Substance: EVEROLIMUS
  14. OMEPRAZOLE. [Concomitant]
     Active Substance: OMEPRAZOLE
  15. SODIUM BICARBONATE. [Concomitant]
     Active Substance: SODIUM BICARBONATE

REACTIONS (25)
  - Aphonia [Not Recovered/Not Resolved]
  - Thyroid function test abnormal [Unknown]
  - Fatigue [Not Recovered/Not Resolved]
  - Blood pressure increased [Not Recovered/Not Resolved]
  - Myalgia [Not Recovered/Not Resolved]
  - Cough [Not Recovered/Not Resolved]
  - Oral pain [Not Recovered/Not Resolved]
  - Somnolence [Unknown]
  - Stomatitis [Not Recovered/Not Resolved]
  - Dehydration [Not Recovered/Not Resolved]
  - Pneumonia [Not Recovered/Not Resolved]
  - Rash erythematous [Unknown]
  - Decreased appetite [Not Recovered/Not Resolved]
  - Urinary incontinence [Unknown]
  - Diarrhoea [Not Recovered/Not Resolved]
  - Abdominal pain [Not Recovered/Not Resolved]
  - Eructation [Unknown]
  - Thoracic vertebral fracture [Unknown]
  - Dizziness [Unknown]
  - Hallucination [Unknown]
  - Epistaxis [Not Recovered/Not Resolved]
  - Musculoskeletal chest pain [Not Recovered/Not Resolved]
  - Hiccups [Not Recovered/Not Resolved]
  - Back pain [Not Recovered/Not Resolved]
  - Neutrophil count abnormal [Unknown]

NARRATIVE: CASE EVENT DATE: 2018
